FAERS Safety Report 22657993 (Version 3)
Quarter: 2024Q2

REPORT INFORMATION
  Report Type: Spontaneous
  Country: FR (occurrence: FR)
  Receive Date: 20230630
  Receipt Date: 20240426
  Transmission Date: 20240715
  Serious: Yes (Death, Other)
  Sender: FDA-Public Use
  Company Number: FR-JNJFOC-20230662289

PATIENT
  Age: 54 Year
  Sex: Female
  Weight: 95 kg

DRUGS (2)
  1. TECVAYLI [Suspect]
     Active Substance: TECLISTAMAB-CQYV
     Indication: Plasma cell myeloma
     Dosage: ON 14-APR-2023, LAST INJECTION CYCLE 3 DAY 8
     Route: 065
     Dates: start: 20230210
  2. TECVAYLI [Suspect]
     Active Substance: TECLISTAMAB-CQYV
     Dosage: ON 14-APR-2023, LAST INJECTION CYCLE 3 DAY 8
     Route: 065
     Dates: end: 20230414

REACTIONS (2)
  - Adverse event [Fatal]
  - Lung disorder [Unknown]
